FAERS Safety Report 25958344 (Version 1)
Quarter: 2025Q4

REPORT INFORMATION
  Report Type: Spontaneous
  Country: US (occurrence: US)
  Receive Date: 20251024
  Receipt Date: 20251024
  Transmission Date: 20260117
  Serious: No
  Sender: GALPHARM INTERNATIONAL
  Company Number: US-PERRIGO-25US004549

PATIENT
  Sex: Male

DRUGS (2)
  1. NICOTINE POLACRILEX [Suspect]
     Active Substance: NICOTINE
     Indication: Smoking cessation therapy
     Dosage: 8-16 MG, APPROXIMATELY Q2H
     Route: 002
     Dates: start: 2023, end: 2023
  2. NICOTINE POLACRILEX [Suspect]
     Active Substance: NICOTINE
     Dosage: 8-16 MG, APPROXIMATELY Q2H
     Route: 002
     Dates: start: 20250404, end: 20250408

REACTIONS (6)
  - Chills [Recovered/Resolved]
  - Genital burning sensation [Recovered/Resolved]
  - Blood testosterone decreased [Not Recovered/Not Resolved]
  - Drug ineffective [Unknown]
  - Overdose [Unknown]
  - Incorrect dose administered [Unknown]

NARRATIVE: CASE EVENT DATE: 20230101
